FAERS Safety Report 9695515 (Version 1)
Quarter: 2013Q4

REPORT INFORMATION
  Report Type: Spontaneous
  Country: US (occurrence: None)
  Receive Date: 20131118
  Receipt Date: 20131118
  Transmission Date: 20140711
  Serious: No
  Sender: FDA-Public Use
  Company Number: None

PATIENT
  Age: 45 Year
  Sex: 0

DRUGS (1)
  1. DEPO PROVERA [Suspect]
     Indication: CONTRACEPTION
     Dosage: INTO THE MUSCLE?EVERY 3 MONTHS

REACTIONS (6)
  - Hyperhidrosis [None]
  - Insomnia [None]
  - Fatigue [None]
  - Weight increased [None]
  - Depression [None]
  - Neck mass [None]
